FAERS Safety Report 7602488-1 (Version None)
Quarter: 2011Q3

REPORT INFORMATION
  Report Type: 
  Country: None (occurrence: None)
  Receive Date: 20110712
  Receipt Date: 20110707
  Transmission Date: 20111222
  Serious: Yes (Hospitalization, Other)
  Sender: FDA-Public Use
  Company Number: AR-BRISTOL-MYERS SQUIBB COMPANY-15705650

PATIENT
  Age: 71 Year
  Sex: Female

DRUGS (3)
  1. GLICLAZIDE [Suspect]
     Indication: TYPE 2 DIABETES MELLITUS
  2. BLINDED: SAXAGLIPTIN [Suspect]
     Indication: TYPE 2 DIABETES MELLITUS
     Dosage: INTERRUPTED ON 15FEB201; RESTARTED ON 22FEB2011
     Dates: start: 20110209
  3. PLACEBO [Suspect]
     Indication: TYPE 2 DIABETES MELLITUS

REACTIONS (2)
  - PANCREATITIS [None]
  - CHOLELITHIASIS [None]
